FAERS Safety Report 20741095 (Version 2)
Quarter: 2022Q2

REPORT INFORMATION
  Report Type: Spontaneous
  Country: US (occurrence: US)
  Receive Date: 20220422
  Receipt Date: 20220511
  Transmission Date: 20220720
  Serious: Yes (Hospitalization, Other)
  Sender: FDA-Public Use
  Company Number: US-009507513-2204USA006088

PATIENT
  Age: 81 Year
  Sex: Male
  Weight: 71.1 kg

DRUGS (2)
  1. KEYTRUDA [Suspect]
     Active Substance: PEMBROLIZUMAB
     Indication: Neoplasm malignant
     Dosage: 200 MILLIGRAM, Q3W
     Route: 042
     Dates: start: 2021
  2. JELMYTO [Suspect]
     Active Substance: MITOMYCIN
     Indication: Neoplasm malignant
     Dosage: UNK
     Route: 042
     Dates: start: 2021

REACTIONS (6)
  - Kidney ablation [Unknown]
  - Lymphadenectomy [Unknown]
  - Nephroureterectomy [Unknown]
  - Renal failure [Unknown]
  - Malignant neoplasm progression [Unknown]
  - Drug ineffective [Unknown]

NARRATIVE: CASE EVENT DATE: 20220301
